FAERS Safety Report 25256297 (Version 1)
Quarter: 2025Q2

REPORT INFORMATION
  Report Type: Spontaneous
  Country: US (occurrence: US)
  Receive Date: 20250430
  Receipt Date: 20250430
  Transmission Date: 20250716
  Serious: No
  Sender: HIKMA
  Company Number: US-HIKMA PHARMACEUTICALS USA INC.-US-H14001-25-02927

PATIENT
  Sex: Female
  Weight: 47.619 kg

DRUGS (4)
  1. PREDNISONE [Suspect]
     Active Substance: PREDNISONE
     Indication: Product used for unknown indication
     Route: 065
  2. KEYTRUDA [Concomitant]
     Active Substance: PEMBROLIZUMAB
     Indication: Product used for unknown indication
     Route: 065
  3. LENVIMA [Concomitant]
     Active Substance: LENVATINIB
     Route: 065
     Dates: start: 20240611
  4. LENVIMA [Concomitant]
     Active Substance: LENVATINIB
     Indication: Product used for unknown indication
     Dates: start: 20250124, end: 20250317

REACTIONS (4)
  - Hepatic enzyme increased [Unknown]
  - Alopecia [Unknown]
  - Dysphemia [Unknown]
  - Vocal cord atrophy [Unknown]
